FAERS Safety Report 9180107 (Version 2)
Quarter: 2013Q2

REPORT INFORMATION
  Report Type: Report from Study
  Country: JP (occurrence: JP)
  Receive Date: 20130321
  Receipt Date: 20130529
  Transmission Date: 20140414
  Serious: Yes (Hospitalization)
  Sender: FDA-Public Use
  Company Number: JP-GILEAD-2013-0072269

PATIENT
  Age: 59 Year
  Sex: Female

DRUGS (19)
  1. AMBRISENTAN [Suspect]
     Indication: PRODUCT USED FOR UNKNOWN INDICATION
     Dosage: 5 MG, UNK
     Route: 048
     Dates: start: 20120726
  2. AMBRISENTAN [Suspect]
     Dosage: 10 MG, UNK
     Route: 048
     Dates: end: 20120725
  3. PREDONINE                          /00016201/ [Concomitant]
     Route: 048
  4. PARIET [Concomitant]
     Route: 048
  5. PARIET [Concomitant]
     Route: 048
  6. THYRADIN [Concomitant]
     Route: 048
  7. THYRADIN [Concomitant]
     Route: 048
  8. URSO                               /00465701/ [Concomitant]
     Route: 048
  9. REVATIO [Concomitant]
     Route: 048
  10. REVATIO [Concomitant]
     Route: 048
  11. SELBEX [Concomitant]
     Route: 048
  12. SELBEX [Concomitant]
     Route: 048
  13. HICEE                              /00008001/ [Concomitant]
     Indication: VITAMIN SUPPLEMENTATION
     Route: 048
  14. THYROXINE SODIUM [Concomitant]
  15. VOLIBRIS [Suspect]
     Indication: PRODUCT USED FOR UNKNOWN INDICATION
     Dosage: 10MG PER DAY
     Route: 048
     Dates: end: 20120725
  16. VOLIBRIS [Suspect]
     Dosage: 5MG PER DAY
     Route: 048
     Dates: start: 20120726
  17. PREDONINE                          /00016201/ [Concomitant]
     Route: 048
  18. URSO                               /00465701/ [Concomitant]
     Route: 048
  19. HICEE                              /00008001/ [Concomitant]
     Indication: VITAMIN SUPPLEMENTATION
     Route: 048

REACTIONS (5)
  - Hepatocellular carcinoma [Recovering/Resolving]
  - Splenic artery aneurysm [Not Recovered/Not Resolved]
  - Hepatic function abnormal [Recovering/Resolving]
  - Hypoalbuminaemia [Recovering/Resolving]
  - Face oedema [Recovered/Resolved]
